FAERS Safety Report 5936166-1 (Version None)
Quarter: 2008Q4

REPORT INFORMATION
  Report Type: 
  Country: None (occurrence: None)
  Receive Date: 20081030
  Receipt Date: 20081020
  Transmission Date: 20090506
  Serious: Yes (Death, Hospitalization)
  Sender: FDA-Public Use
  Company Number: PT-ABBOTT-08P-130-0479597-03

PATIENT
  Sex: Male
  Weight: 66 kg

DRUGS (5)
  1. RITONAVIR SOFT GELATIN CAPSULES (NOT ADMINISTERED) [Suspect]
     Indication: HIV INFECTION
     Route: 048
  2. KALETRA [Suspect]
     Indication: HIV INFECTION
     Dosage: 200/50 MG
     Route: 048
     Dates: start: 20031106, end: 20080923
  3. DIDANOSINA [Concomitant]
     Indication: HIV INFECTION
     Route: 048
     Dates: start: 20031106, end: 20080923
  4. TENOFOVIR [Concomitant]
     Indication: HIV INFECTION
     Route: 048
     Dates: start: 20031106, end: 20080923
  5. PRAVASTATIN [Concomitant]
     Indication: DYSLIPIDAEMIA
     Dates: start: 20061214, end: 20080923

REACTIONS (3)
  - HYPOTENSION [None]
  - MYOCARDIAL INFARCTION [None]
  - PNEUMONIA [None]
